FAERS Safety Report 6348690-0 (Version None)
Quarter: 2009Q3

REPORT INFORMATION
  Report Type: 
  Country: None (occurrence: None)
  Receive Date: 20090911
  Receipt Date: 20090828
  Transmission Date: 20100115
  Serious: Yes (Death, Other)
  Sender: FDA-Public Use
  Company Number: CH-PFIZER INC-2009261185

PATIENT
  Age: 60 Year

DRUGS (3)
  1. SULFASALAZINE [Suspect]
     Indication: POLYARTHRITIS
     Dosage: UNK
  2. VANCOMYCIN [Suspect]
     Dosage: UNK
  3. PREDNISONE [Concomitant]
     Indication: POLYARTHRITIS

REACTIONS (12)
  - ACUTE HEPATIC FAILURE [None]
  - BRONCHOPULMONARY ASPERGILLOSIS [None]
  - CARDIAC ARREST [None]
  - DRUG RASH WITH EOSINOPHILIA AND SYSTEMIC SYMPTOMS [None]
  - HAEMORRHAGE [None]
  - HEPATITIS ACUTE [None]
  - HUMAN HERPESVIRUS 6 INFECTION [None]
  - HYPOTENSION [None]
  - LIVER TRANSPLANT REJECTION [None]
  - RENAL FAILURE [None]
  - STAPHYLOCOCCAL INFECTION [None]
  - TACHYCARDIA [None]
